FAERS Safety Report 8987554 (Version 1)
Quarter: 2012Q4

REPORT INFORMATION
  Report Type: 
  Country: US (occurrence: US)
  Receive Date: 20121227
  Receipt Date: 20121227
  Transmission Date: 20130627
  Serious: Yes (Other)
  Sender: FDA-Public Use
  Company Number: US-ROCHE-1072108

PATIENT

DRUGS (3)
  1. BEVACIZUMAB [Suspect]
     Indication: GLIOBLASTOMA
     Route: 042
  2. VORINOSTAT [Suspect]
     Indication: GLIOBLASTOMA
     Route: 048
  3. TEMOZOLOMIDE [Suspect]
     Indication: GLIOBLASTOMA
     Route: 048

REACTIONS (14)
  - Pulmonary embolism [Unknown]
  - Hyperglycaemia [Unknown]
  - Intestinal perforation [Unknown]
  - Intracranial haematoma [Unknown]
  - Cerebral ischaemia [Unknown]
  - Gait disturbance [Unknown]
  - Convulsion [Unknown]
  - Fatigue [Unknown]
  - Diarrhoea [Unknown]
  - Hypertension [Unknown]
  - Anaemia [Unknown]
  - Thrombocytopenia [Unknown]
  - Leukopenia [Unknown]
  - Neutropenia [Unknown]
